FAERS Safety Report 16789830 (Version 3)
Quarter: 2020Q2

REPORT INFORMATION
  Report Type: Spontaneous
  Country: ES (occurrence: ES)
  Receive Date: 20190910
  Receipt Date: 20200520
  Transmission Date: 20200713
  Serious: Yes (Other)
  Sender: FDA-Public Use
  Company Number: ES-AUROBINDO-AUR-APL-2019-059394

PATIENT
  Age: 71 Year
  Sex: Female

DRUGS (11)
  1. LOSARTAN. [Suspect]
     Active Substance: LOSARTAN
     Indication: PRODUCT USED FOR UNKNOWN INDICATION
     Dosage: 100 MILLIGRAM, ONCE A DAY, AT BREAKFAST
     Route: 065
  2. OMEPRAZOLE. [Suspect]
     Active Substance: OMEPRAZOLE
     Indication: PRODUCT USED FOR UNKNOWN INDICATION
     Dosage: 20 MILLIGRAM, ONCE A DAY
     Route: 065
  3. PREGABALIN. [Suspect]
     Active Substance: PREGABALIN
     Indication: PRODUCT USED FOR UNKNOWN INDICATION
     Dosage: 75 MILLIGRAM, 3 TIMES A DAY
     Route: 065
  4. BROMAZEPAM [Suspect]
     Active Substance: BROMAZEPAM
     Dosage: 1.5 MILLIGRAM, TWO TIMES A DAY AT BREAKFAST AND DINNER
     Route: 065
  5. QUETIAPINE. [Suspect]
     Active Substance: QUETIAPINE
     Indication: PRODUCT USED FOR UNKNOWN INDICATION
     Dosage: 200 MILLIGRAM, TWO TIMES A DAY FOR BREAKFAST AND DINNER
     Route: 065
  6. SIMVASTATIN. [Suspect]
     Active Substance: SIMVASTATIN
     Indication: PRODUCT USED FOR UNKNOWN INDICATION
     Dosage: ,IN THE DINNER10 MILLIGRAM, ONCE A DAY
     Route: 065
  7. OXCARBAZEPINE. [Suspect]
     Active Substance: OXCARBAZEPINE
     Indication: PRODUCT USED FOR UNKNOWN INDICATION
     Dosage: 300 MILLIGRAM, TWO TIMES A DAY (REINTRODUCED 3 MONTHS AGO)
     Route: 065
  8. QUETIAPINE. [Suspect]
     Active Substance: QUETIAPINE
     Dosage: 25 MILLIGRAM, TWO TIMES A DAY AT BREAKFAST AND DINNER
     Route: 065
  9. ACETYLSALICYLIC ACID [Suspect]
     Active Substance: ASPIRIN
     Indication: PRODUCT USED FOR UNKNOWN INDICATION
     Dosage: 100 MILLIGRAM, ONCE A DAY,100 MG, DAILY
     Route: 065
  10. AMLODIPINE [Suspect]
     Active Substance: AMLODIPINE BESYLATE
     Indication: PRODUCT USED FOR UNKNOWN INDICATION
     Dosage: 5 MILLIGRAM, ONCE A DAY FOR BREAKFAST
     Route: 065
  11. BROMAZEPAM [Suspect]
     Active Substance: BROMAZEPAM
     Indication: PRODUCT USED FOR UNKNOWN INDICATION
     Dosage: 3 MILLIGRAM, 3 TIMES A DAY
     Route: 065

REACTIONS (3)
  - Parkinsonism [Recovered/Resolved]
  - Impaired quality of life [Recovered/Resolved]
  - Anal incontinence [Recovered/Resolved]
